FAERS Safety Report 10130027 (Version 2)
Quarter: 2014Q2

REPORT INFORMATION
  Report Type: Spontaneous
  Country: GB (occurrence: GB)
  Receive Date: 20140428
  Receipt Date: 20140529
  Transmission Date: 20141212
  Serious: Yes (Hospitalization, Disabling)
  Sender: FDA-Public Use
  Company Number: GB-JNJFOC-20140412961

PATIENT
  Age: 78 Year
  Sex: Male

DRUGS (15)
  1. ZYTIGA [Suspect]
     Indication: PROSTATE CANCER
     Route: 048
     Dates: start: 20130430, end: 20130924
  2. ZOMORPH [Concomitant]
     Indication: PAIN
     Route: 048
  3. DOMPERIDONE [Concomitant]
     Indication: NAUSEA
     Route: 048
  4. PARACETAMOL [Concomitant]
     Indication: PAIN
     Route: 048
  5. OMEPRAZOLE [Concomitant]
     Indication: GASTROOESOPHAGEAL REFLUX DISEASE
     Route: 048
  6. CITALOPRAM [Concomitant]
     Indication: ANXIETY
     Route: 048
  7. PREDNISOLONE [Concomitant]
     Indication: PROSTATE CANCER
     Route: 048
  8. ASPIRIN [Concomitant]
     Route: 048
  9. LISINOPRIL [Concomitant]
     Indication: HYPERTENSION
     Route: 048
     Dates: start: 2012
  10. SIMVASTATIN [Concomitant]
     Indication: HYPERCHOLESTEROLAEMIA
     Route: 048
     Dates: start: 2012
  11. ZOPICLONE [Concomitant]
     Route: 065
     Dates: start: 20130925
  12. AMLODIPINE [Concomitant]
     Indication: HYPERTENSION
     Route: 065
     Dates: start: 2012
  13. LEVOFLOXACIN [Concomitant]
     Route: 048
     Dates: start: 20130925, end: 20131009
  14. MEBEVERINE [Concomitant]
     Indication: IRRITABLE BOWEL SYNDROME
     Dosage: 135
     Route: 048
  15. NICOTINE [Concomitant]
     Dosage: START DATE: 25-SEP
     Route: 061
     Dates: start: 20130925, end: 20131016

REACTIONS (4)
  - Fall [Recovered/Resolved]
  - Eyeball rupture [Recovered/Resolved]
  - Blindness unilateral [Unknown]
  - Eye injury [Recovered/Resolved]
